FAERS Safety Report 25671995 (Version 2)
Quarter: 2025Q4

REPORT INFORMATION
  Report Type: Spontaneous
  Country: US (occurrence: US)
  Receive Date: 20250812
  Receipt Date: 20251106
  Transmission Date: 20260118
  Serious: No
  Sender: LUNDBECK
  Company Number: US-LUNDBECK-DKLU4017993

PATIENT
  Age: 42 Year
  Weight: 143 kg

DRUGS (1)
  1. VYEPTI [Suspect]
     Active Substance: EPTINEZUMAB-JJMR
     Indication: Migraine
     Dosage: 100 MILLIGRAM
     Route: 041
     Dates: start: 20250630

REACTIONS (3)
  - Infusion site infection [Unknown]
  - Infusion site extravasation [Unknown]
  - Wrong technique in product usage process [Unknown]

NARRATIVE: CASE EVENT DATE: 20250630
